FAERS Safety Report 5982116-1 (Version None)
Quarter: 2008Q4

REPORT INFORMATION
  Report Type: 
  Country: None (occurrence: None)
  Receive Date: 20081202
  Receipt Date: 20081114
  Transmission Date: 20090506
  Serious: Yes (Hospitalization, Disabling, Other)
  Sender: FDA-Public Use
  Company Number: 2008AL011980

PATIENT
  Age: 18 Year
  Sex: Female

DRUGS (5)
  1. TRAMADOL HYDROCHLORIDE [Suspect]
     Indication: PAIN
     Dosage: 100 MG;IV
     Route: 042
     Dates: start: 20081031, end: 20081031
  2. CYCLIZINE [Concomitant]
  3. ACETAMINOPHEN [Concomitant]
  4. MOVICOL [Concomitant]
  5. LACTULOSE [Concomitant]

REACTIONS (1)
  - GRAND MAL CONVULSION [None]
